FAERS Safety Report 7542379-8 (Version None)
Quarter: 2011Q2

REPORT INFORMATION
  Report Type: 
  Country: None (occurrence: None)
  Receive Date: 20110524
  Receipt Date: 20110218
  Transmission Date: 20111010
  Serious: No
  Sender: FDA-Public Use
  Company Number: 026064

PATIENT
  Sex: Male

DRUGS (2)
  1. CIMZIA [Suspect]
     Indication: CROHN'S DISEASE
     Dosage: FORM : PFS SUBCUTANEOUS
     Route: 058
     Dates: start: 20101216
  2. PREDNISONE [Concomitant]

REACTIONS (5)
  - COLITIS [None]
  - FATIGUE [None]
  - DRUG INEFFECTIVE [None]
  - FEELING ABNORMAL [None]
  - HAEMATOCHEZIA [None]
